FAERS Safety Report 8505880-6 (Version None)
Quarter: 2012Q3

REPORT INFORMATION
  Report Type: 
  Country: None (occurrence: None)
  Receive Date: 20120712
  Receipt Date: 20120703
  Transmission Date: 20120928
  Serious: Yes (Death, Hospitalization)
  Sender: FDA-Public Use
  Company Number: AU-ACTELION-A-CH2012-68168

PATIENT
  Sex: Female

DRUGS (14)
  1. PROSTAMIDE [Concomitant]
     Dosage: UNK
  2. TRACLEER [Suspect]
     Dosage: 62.5 MG, BID
     Route: 048
     Dates: start: 20080114, end: 20080213
  3. ATENOLOL [Concomitant]
  4. OXYGEN [Concomitant]
  5. FUROSEMIDE [Concomitant]
  6. DIGOXIN [Concomitant]
  7. RISEDRONATE SODIUM [Concomitant]
  8. SPIRIVA [Concomitant]
  9. TRACLEER [Suspect]
     Indication: PULMONARY ARTERIAL HYPERTENSION
     Dosage: 125 MG, BID
     Route: 048
     Dates: start: 20080214, end: 20120613
  10. SIMVASTATIN [Concomitant]
  11. DIAZEPAM [Concomitant]
  12. OSTELIN [Concomitant]
  13. REVATIO [Concomitant]
  14. SPIRONOLACTONE [Concomitant]

REACTIONS (5)
  - CEREBROVASCULAR ACCIDENT [None]
  - HEMIPLEGIA [None]
  - FALL [None]
  - SOMNOLENCE [None]
  - CONFUSIONAL STATE [None]
